FAERS Safety Report 7116692-2 (Version None)
Quarter: 2010Q4

REPORT INFORMATION
  Report Type: 
  Country: None (occurrence: None)
  Receive Date: 20101122
  Receipt Date: 20101112
  Transmission Date: 20110411
  Serious: Yes (Hospitalization)
  Sender: FDA-Public Use
  Company Number: B0685384A

PATIENT
  Sex: Male

DRUGS (2)
  1. AUGMENTIN [Suspect]
     Dosage: 2G PER DAY
     Dates: start: 20101023, end: 20101101
  2. KLACID [Suspect]
     Dosage: 1TAB PER DAY
     Dates: start: 20101023, end: 20101101

REACTIONS (2)
  - DRUG EXPOSURE VIA BREAST MILK [None]
  - RASH MACULO-PAPULAR [None]
